FAERS Safety Report 4296248-X (Version None)
Quarter: 2004Q1

REPORT INFORMATION
  Report Type: 
  Country: None (occurrence: None)
  Receive Date: 20040217
  Receipt Date: 20030926
  Transmission Date: 20041129
  Serious: No
  Sender: FDA-Public Use
  Company Number: US-GLAXOSMITHKLINE-A0427692A

PATIENT
  Age: 16 Year
  Sex: Male

DRUGS (2)
  1. LAMICTAL [Suspect]
     Indication: EPILEPSY
     Dosage: 300MG TWICE PER DAY
     Route: 048
     Dates: start: 20030101
  2. CARBATROL [Concomitant]
     Dosage: 900MG TWICE PER DAY
     Route: 065

REACTIONS (2)
  - ACTIVATED PARTIAL THROMBOPLASTIN TIME PROLONGED [None]
  - PROTHROMBIN TIME PROLONGED [None]
